FAERS Safety Report 18346625 (Version 2)
Quarter: 2020Q4

REPORT INFORMATION
  Report Type: Report from Study
  Country: JP (occurrence: JP)
  Receive Date: 20201006
  Receipt Date: 20201125
  Transmission Date: 20210114
  Serious: Yes (Disabling, Other)
  Sender: FDA-Public Use
  Company Number: JP-ASTELLAS-2016JP009826

PATIENT
  Age: 58 Year
  Sex: Female
  Weight: 48 kg

DRUGS (20)
  1. PREDONINE [Suspect]
     Active Substance: PREDNISOLONE
     Dosage: 35 MG/DAY, UNKNOWN FREQ.
     Route: 048
     Dates: start: 20150220, end: 20150305
  2. PREDONINE [Suspect]
     Active Substance: PREDNISOLONE
     Dosage: 20 MG/DAY, UNKNOWN FREQ.
     Route: 048
     Dates: start: 20150515, end: 20150611
  3. PREDONINE [Suspect]
     Active Substance: PREDNISOLONE
     Dosage: 16 MG/DAY, UNKNOWN FREQ.
     Route: 048
     Dates: start: 20150711, end: 20150814
  4. PREDONINE [Suspect]
     Active Substance: PREDNISOLONE
     Dosage: 9 MG/DAY, UNKNOWN FREQ.
     Route: 048
     Dates: start: 20151205
  5. PREDONINE [Suspect]
     Active Substance: PREDNISOLONE
     Indication: PRODUCT USED FOR UNKNOWN INDICATION
     Dosage: 45 MG/DAY, UNKNOWN FREQ.
     Route: 048
     Dates: start: 20141226, end: 20150122
  6. PREDONINE [Suspect]
     Active Substance: PREDNISOLONE
     Dosage: 40 MG/DAY, UNKNOWN FREQ.
     Route: 048
     Dates: start: 20150123, end: 20150205
  7. PREDONINE [Suspect]
     Active Substance: PREDNISOLONE
     Dosage: 37.5 MG/DAY, UNKNOWN FREQ.
     Route: 048
     Dates: start: 20150206, end: 20150219
  8. PREDONINE [Suspect]
     Active Substance: PREDNISOLONE
     Dosage: 22.5 MG/DAY, UNKNOWN FREQ.
     Route: 048
     Dates: start: 20150501, end: 20150514
  9. PREDONINE [Suspect]
     Active Substance: PREDNISOLONE
     Dosage: 12 MG/DAY, UNKNOWN FREQ.
     Route: 048
     Dates: start: 20150905, end: 20151009
  10. PREDONINE [Suspect]
     Active Substance: PREDNISOLONE
     Dosage: 32.5 MG/DAY, UNKNOWN FREQ.
     Route: 048
     Dates: start: 20150306, end: 20150319
  11. PREDONINE [Suspect]
     Active Substance: PREDNISOLONE
     Dosage: 10 MG/DAY, UNKNOWN FREQ.
     Route: 048
     Dates: start: 20151010, end: 20151204
  12. PREDONINE [Suspect]
     Active Substance: PREDNISOLONE
     Dosage: 30 MG/DAY, UNKNOWN FREQ.
     Route: 048
     Dates: start: 20150320, end: 20150402
  13. TACROLIMUS. [Suspect]
     Active Substance: TACROLIMUS
     Indication: INTERSTITIAL LUNG DISEASE
     Route: 048
     Dates: start: 20141226, end: 20150904
  14. EDIROL [Concomitant]
     Active Substance: ELDECALCITOL
     Indication: PROPHYLAXIS
     Dosage: 0.75 ?G, ONCE DAILY
     Route: 048
     Dates: start: 20141226
  15. BAKTAR [Concomitant]
     Active Substance: SULFAMETHOXAZOLE\TRIMETHOPRIM
     Indication: PROPHYLAXIS
     Route: 048
     Dates: start: 20150110
  16. TACROLIMUS. [Suspect]
     Active Substance: TACROLIMUS
     Indication: POLYMYOSITIS
     Route: 048
     Dates: start: 20150905
  17. PREDONINE [Suspect]
     Active Substance: PREDNISOLONE
     Dosage: 27.5 MG/DAY, UNKNOWN FREQ.
     Route: 048
     Dates: start: 20150403, end: 20150416
  18. PREDONINE [Suspect]
     Active Substance: PREDNISOLONE
     Dosage: 18 MG/DAY, UNKNOWN FREQ.
     Route: 048
     Dates: start: 20150612, end: 20150710
  19. PREDONINE [Suspect]
     Active Substance: PREDNISOLONE
     Dosage: 14 MG/DAY, UNKNOWN FREQ.
     Route: 048
     Dates: start: 20150815, end: 20150904
  20. PREDONINE [Suspect]
     Active Substance: PREDNISOLONE
     Dosage: 25 MG/DAY, UNKNOWN FREQ.
     Route: 048
     Dates: start: 20150417, end: 20150430

REACTIONS (1)
  - Steroid diabetes [Recovered/Resolved]

NARRATIVE: CASE EVENT DATE: 201501
